FAERS Safety Report 9643357 (Version 1)
Quarter: 2013Q4

REPORT INFORMATION
  Report Type: Spontaneous
  Country: GB (occurrence: GB)
  Receive Date: 20131024
  Receipt Date: 20131024
  Transmission Date: 20140711
  Serious: Yes (Other)
  Sender: FDA-Public Use
  Company Number: GB-ELI_LILLY_AND_COMPANY-GB201310004718

PATIENT
  Age: 41 Year
  Sex: Male
  Weight: 178 kg

DRUGS (3)
  1. PROZAC [Suspect]
     Indication: DEPRESSION
     Dosage: 20 MG, TID
     Route: 065
     Dates: start: 1993
  2. ZOPICLONE [Suspect]
     Indication: SLEEP DISORDER
     Dosage: 7.5 MG, QD
     Route: 065
  3. OLANZAPINE [Concomitant]
     Indication: SCHIZOPHRENIA
     Dosage: 15 MG, QD
     Route: 065
     Dates: start: 1993

REACTIONS (8)
  - Anger [Not Recovered/Not Resolved]
  - Disorientation [Not Recovered/Not Resolved]
  - Amnesia [Not Recovered/Not Resolved]
  - Dizziness [Not Recovered/Not Resolved]
  - Somnolence [Unknown]
  - Tremor [Not Recovered/Not Resolved]
  - Insomnia [Not Recovered/Not Resolved]
  - Anxiety [Not Recovered/Not Resolved]
